FAERS Safety Report 15900731 (Version 2)
Quarter: 2019Q1

REPORT INFORMATION
  Report Type: Spontaneous
  Country: CH (occurrence: CH)
  Receive Date: 20190201
  Receipt Date: 20190208
  Transmission Date: 20190417
  Serious: Yes (Other)
  Sender: FDA-Public Use
  Company Number: CH-JNJFOC-20190138848

PATIENT
  Sex: Female

DRUGS (1)
  1. IBRUTINIB [Suspect]
     Active Substance: IBRUTINIB
     Indication: CHRONIC LYMPHOCYTIC LEUKAEMIA
     Route: 048
     Dates: end: 201811

REACTIONS (4)
  - Granulomatous liver disease [Recovering/Resolving]
  - Respiratory tract infection [Recovering/Resolving]
  - Pyelonephritis [Recovering/Resolving]
  - Urinary tract infection [Recovering/Resolving]
